FAERS Safety Report 8506370-7 (Version None)
Quarter: 2012Q3

REPORT INFORMATION
  Report Type: 
  Country: None (occurrence: None)
  Receive Date: 20120712
  Receipt Date: 20120706
  Transmission Date: 20120928
  Serious: Yes (Other)
  Sender: FDA-Public Use
  Company Number: US-JNJFOC-20120306889

PATIENT
  Sex: Male
  Weight: 83.92 kg

DRUGS (3)
  1. RISPERIDONE [Suspect]
     Indication: PSYCHOTIC DISORDER
     Route: 065
     Dates: start: 20020101
  2. COGENTIN [Concomitant]
     Indication: TREMOR
     Route: 048
     Dates: start: 19700101
  3. RISPERIDONE [Suspect]
     Route: 065
     Dates: start: 19920101

REACTIONS (4)
  - FEELING ABNORMAL [None]
  - ANGER [None]
  - DREAMY STATE [None]
  - HALLUCINATION, AUDITORY [None]
